FAERS Safety Report 25271120 (Version 1)
Quarter: 2025Q2

REPORT INFORMATION
  Report Type: Spontaneous
  Country: PT (occurrence: PT)
  Receive Date: 20250506
  Receipt Date: 20250506
  Transmission Date: 20250717
  Serious: Yes (Other)
  Sender: RECORDATI
  Company Number: PT-ORPHANEU-2025000765

PATIENT
  Age: 47 Year
  Sex: Male
  Weight: 92 kg

DRUGS (11)
  1. OSILODROSTAT [Suspect]
     Active Substance: OSILODROSTAT
     Indication: Pituitary-dependent Cushing^s syndrome
     Dates: start: 202406, end: 2024
  2. OSILODROSTAT [Suspect]
     Active Substance: OSILODROSTAT
     Dates: start: 20241216
  3. OSILODROSTAT [Suspect]
     Active Substance: OSILODROSTAT
     Dates: start: 2025
  4. PASIREOTIDE [Suspect]
     Active Substance: PASIREOTIDE
     Indication: Pituitary-dependent Cushing^s syndrome
     Dates: start: 202205, end: 2022
  5. PASIREOTIDE [Suspect]
     Active Substance: PASIREOTIDE
     Dates: start: 202212
  6. METYRAPONE [Concomitant]
     Active Substance: METYRAPONE
     Indication: Product used for unknown indication
     Dates: start: 202012, end: 202406
  7. KETOCONAZOLE [Concomitant]
     Active Substance: KETOCONAZOLE
     Indication: Product used for unknown indication
     Dates: start: 202006, end: 202212
  8. CABERGOLINE [Concomitant]
     Active Substance: CABERGOLINE
     Indication: Pituitary-dependent Cushing^s syndrome
     Dates: start: 202211, end: 2022
  9. CABERGOLINE [Concomitant]
     Active Substance: CABERGOLINE
     Dates: start: 202212, end: 202412
  10. ATENOLOL [Concomitant]
     Active Substance: ATENOLOL
     Indication: Hypertension
  11. ATORVASTATIN [Concomitant]
     Active Substance: ATORVASTATIN
     Indication: Dyslipidaemia

REACTIONS (1)
  - Diabetes mellitus [Recovered/Resolved]

NARRATIVE: CASE EVENT DATE: 20221001
